FAERS Safety Report 5207658-8 (Version None)
Quarter: 2007Q1

REPORT INFORMATION
  Report Type: 
  Country: None (occurrence: None)
  Receive Date: 20070112
  Receipt Date: 20070104
  Transmission Date: 20070707
  Serious: Yes (Death, Other)
  Sender: FDA-Public Use
  Company Number: US-PFIZER INC-2006144770

PATIENT
  Sex: Male
  Weight: 59 kg

DRUGS (5)
  1. SUTENT [Suspect]
     Indication: RENAL CELL CARCINOMA STAGE UNSPECIFIED
     Dates: start: 20060713, end: 20061117
  2. COREG [Concomitant]
  3. LIPITOR [Concomitant]
     Dates: start: 20040101
  4. LISINOPRIL [Concomitant]
     Dates: start: 20040101
  5. PREVACID [Concomitant]

REACTIONS (10)
  - BLOOD CALCIUM DECREASED [None]
  - BLOOD POTASSIUM DECREASED [None]
  - GENERAL PHYSICAL HEALTH DETERIORATION [None]
  - HAEMOPTYSIS [None]
  - HYPOXIA [None]
  - LOSS OF CONSCIOUSNESS [None]
  - METASTASES TO CENTRAL NERVOUS SYSTEM [None]
  - NERVOUS SYSTEM DISORDER [None]
  - PULMONARY HAEMORRHAGE [None]
  - WHITE BLOOD CELL COUNT DECREASED [None]
